FAERS Safety Report 22351946 (Version 1)
Quarter: 2023Q2

REPORT INFORMATION
  Report Type: Spontaneous
  Country: US (occurrence: None)
  Receive Date: 20230522
  Receipt Date: 20230522
  Transmission Date: 20230722
  Serious: No
  Sender: FDA-Public Use
  Company Number: None

PATIENT
  Sex: Female

DRUGS (1)
  1. PROLIA [Suspect]
     Active Substance: DENOSUMAB
     Dosage: OTHER  SUBCUTANEOUS?
     Route: 058

REACTIONS (4)
  - Osteoporosis [None]
  - Rib fracture [None]
  - Cough [None]
  - Sneezing [None]
